FAERS Safety Report 6081632-4 (Version None)
Quarter: 2009Q1

REPORT INFORMATION
  Report Type: 
  Country: None (occurrence: None)
  Receive Date: 20090213
  Receipt Date: 20090129
  Transmission Date: 20090719
  Serious: Yes (Hospitalization)
  Sender: FDA-Public Use
  Company Number: 2009000282

PATIENT
  Age: 74 Year
  Sex: Female

DRUGS (11)
  1. ERLOTINIB (ERLOTINIB) (TABLET) (ERLOTINIB) [Suspect]
     Indication: NON-SMALL CELL LUNG CANCER
     Dosage: 100 MG QD, ORAL
     Route: 048
     Dates: start: 20080314, end: 20090112
  2. DURAGESIC-100 [Suspect]
  3. ARICEPT [Concomitant]
  4. NEURONTIN [Concomitant]
  5. PANTECTA (PANTOPRAZOLE SODIUM) [Concomitant]
  6. DAFLON (DIOSMIN) [Concomitant]
  7. ZARATOR [Concomitant]
  8. ACTONEL [Concomitant]
  9. SERETIDE (SERETIDE) [Concomitant]
  10. DISNAL [Concomitant]
  11. EBIXA [Concomitant]

REACTIONS (1)
  - INTESTINAL OBSTRUCTION [None]
